FAERS Safety Report 9889035 (Version 1)
Quarter: 2014Q1

REPORT INFORMATION
  Report Type: Spontaneous
  Country: US (occurrence: None)
  Receive Date: 20140207
  Receipt Date: 20140207
  Transmission Date: 20141002
  Serious: Yes (Hospitalization)
  Sender: FDA-Public Use
  Company Number: UTC-043666

PATIENT
  Age: 35 Year
  Sex: Female
  Weight: 60.45 kg

DRUGS (3)
  1. TYVASO [Suspect]
     Indication: COR PULMONALE CHRONIC
     Dosage: 144 MCG (36 MCG, 4 IN 1 D), INHALATION
     Route: 055
     Dates: start: 20131213
  2. REVATIO [Concomitant]
  3. TRACLEER [Concomitant]

REACTIONS (7)
  - Respiratory disorder [None]
  - Cough [None]
  - Headache [None]
  - Haemoptysis [None]
  - Blood sodium decreased [None]
  - Energy increased [None]
  - Psychomotor hyperactivity [None]
